FAERS Safety Report 6543821-1 (Version None)
Quarter: 2010Q1

REPORT INFORMATION
  Report Type: 
  Country: None (occurrence: None)
  Receive Date: 20100119
  Receipt Date: 20100119
  Transmission Date: 20100710
  Serious: Yes (Life-Threatening)
  Sender: FDA-Public Use
  Company Number: None

PATIENT
  Age: 43 Year
  Sex: Female
  Weight: 62.5964 kg

DRUGS (1)
  1. DILANTIN [Suspect]
     Indication: GRAND MAL CONVULSION
     Dosage: 30 MGS- 3-4- 3 X DAILY-300 MGS. PO
     Route: 048
     Dates: start: 20090204, end: 20091231

REACTIONS (2)
  - CONVULSION [None]
  - PRODUCT FORMULATION ISSUE [None]
